FAERS Safety Report 10203234 (Version 3)
Quarter: 2021Q4

REPORT INFORMATION
  Report Type: Other
  Country: US (occurrence: None)
  Receive Date: 20140529
  Receipt Date: 20211111
  Transmission Date: 20220303
  Serious: Yes (Other)
  Sender: FDA-Public Use
  Company Number: US-ROCHE-1408984

PATIENT
  Sex: Male
  Weight: 44 kg

DRUGS (12)
  1. NUTROPIN [Suspect]
     Active Substance: SOMATROPIN
     Indication: Growth hormone deficiency
     Route: 058
     Dates: end: 201312
  2. NUTROPIN [Suspect]
     Active Substance: SOMATROPIN
  3. NUTROPIN [Suspect]
     Active Substance: SOMATROPIN
     Indication: Hypopituitarism
     Route: 058
     Dates: start: 201312
  4. NUTROPIN [Suspect]
     Active Substance: SOMATROPIN
  5. NUTROPIN [Suspect]
     Active Substance: SOMATROPIN
     Dosage: NUSPIN 10MG/2ML PEN INJECTOR
     Route: 058
  6. NUTROPIN [Suspect]
     Active Substance: SOMATROPIN
  7. NUTROPIN [Suspect]
     Active Substance: SOMATROPIN
     Dosage: NUSPIN 10MG/2ML PEN INJECTOR
     Route: 058
     Dates: start: 20210909
  8. NUTROPIN [Suspect]
     Active Substance: SOMATROPIN
  9. NUTROPIN [Suspect]
     Active Substance: SOMATROPIN
     Dosage: NUSPIN 10MG/2ML PEN INJECTOR
     Route: 058
  10. NUTROPIN [Suspect]
     Active Substance: SOMATROPIN
  11. ADVIL [Concomitant]
     Active Substance: IBUPROFEN
     Indication: Headache
     Route: 048
  12. ANASTROZOLE [Concomitant]
     Active Substance: ANASTROZOLE
     Dosage: TAKE 1 TAB PO QD
     Route: 048
     Dates: start: 20210303

REACTIONS (3)
  - Pharyngitis streptococcal [Unknown]
  - Insulin-like growth factor increased [Unknown]
  - Traumatic haematoma [Unknown]
